FAERS Safety Report 13292181 (Version 2)
Quarter: 2017Q1

REPORT INFORMATION
  Report Type: Spontaneous
  Country: US (occurrence: US)
  Receive Date: 20170303
  Receipt Date: 20170317
  Transmission Date: 20170428
  Serious: No
  Sender: FDA-Public Use
  Company Number: US-GLAXOSMITHKLINE-US2017029650

PATIENT
  Age: 66 Year
  Sex: Female

DRUGS (2)
  1. BENLYSTA [Suspect]
     Active Substance: BELIMUMAB
     Indication: SYSTEMIC LUPUS ERYTHEMATOSUS
     Dosage: UNK UNK, MONTHLY
     Route: 042
     Dates: start: 2013
  2. BENLYSTA [Suspect]
     Active Substance: BELIMUMAB
     Indication: CUTANEOUS LUPUS ERYTHEMATOSUS

REACTIONS (7)
  - Pain [Unknown]
  - Infection [Unknown]
  - Memory impairment [Unknown]
  - Nervous system disorder [Unknown]
  - Fungal skin infection [Unknown]
  - Product use issue [Unknown]
  - General symptom [Unknown]

NARRATIVE: CASE EVENT DATE: 201412
